FAERS Safety Report 9397740 (Version 1)
Quarter: 2013Q3

REPORT INFORMATION
  Report Type: Spontaneous
  Country: JP (occurrence: JP)
  Receive Date: 20130712
  Receipt Date: 20130712
  Transmission Date: 20140515
  Serious: Yes (Other)
  Sender: FDA-Public Use
  Company Number: JP-MYLANLABS-2013S1014719

PATIENT
  Age: 7 Decade
  Sex: Female

DRUGS (15)
  1. TELAVIC [Suspect]
     Indication: CHRONIC HEPATITIS C
     Dosage: 1500 MG/DAY
     Route: 048
  2. RIBAVIRIN [Suspect]
     Indication: CHRONIC HEPATITIS C
     Dosage: 400 MG/DAY
     Route: 065
  3. PEGINTERFERON ALFA-2B [Suspect]
     Indication: CHRONIC HEPATITIS C
     Route: 065
  4. CLOPIDOGREL [Suspect]
     Indication: PERIPHERAL ARTERIAL OCCLUSIVE DISEASE
     Dosage: 1 TABLET PER DAY
     Route: 048
  5. LANSOPRAZOLE [Concomitant]
     Route: 065
  6. AMLODIPINE [Concomitant]
     Route: 065
  7. OLMESARTAN MEDOXOMIL [Concomitant]
     Route: 065
  8. ROSUVASTATIN [Concomitant]
     Route: 065
  9. TEPRENONE [Concomitant]
     Route: 065
  10. NICORANDIL [Concomitant]
     Route: 065
  11. REBAMIPIDE [Concomitant]
     Route: 065
  12. TRAZODONE [Concomitant]
     Route: 065
  13. ETIZOLAM [Concomitant]
     Route: 065
  14. ZOLPIDEM [Concomitant]
     Route: 065
  15. CEFCAPENE PIVOXIL [Concomitant]
     Route: 065

REACTIONS (7)
  - Renal failure [Recovered/Resolved]
  - Gastrointestinal haemorrhage [Recovered/Resolved]
  - Rash [Recovered/Resolved]
  - Platelet count decreased [Recovered/Resolved]
  - Cystitis [Recovered/Resolved]
  - Malaise [Recovered/Resolved]
  - Haemoglobin decreased [Recovered/Resolved]
